FAERS Safety Report 5459307-1 (Version None)
Quarter: 2007Q3

REPORT INFORMATION
  Report Type: 
  Country: None (occurrence: None)
  Receive Date: 20070813
  Receipt Date: 20061128
  Transmission Date: 20080115
  Serious: No
  Sender: FDA-Public Use
  Company Number: 20063343

PATIENT
  Age: 18 Year
  Sex: Male

DRUGS (1)
  1. LIORESAL [Suspect]
     Indication: MUSCLE SPASTICITY
     Dosage: 1300 MCG, DAILY, INTRATHECAL
     Route: 037
     Dates: start: 19970101

REACTIONS (2)
  - DRUG INEFFECTIVE [None]
  - HYPERTONIA [None]
